FAERS Safety Report 15208268 (Version 3)
Quarter: 2019Q2

REPORT INFORMATION
  Report Type: Spontaneous
  Country: FI (occurrence: FI)
  Receive Date: 20180727
  Receipt Date: 20190517
  Transmission Date: 20190711
  Serious: Yes (Death, Hospitalization, Other)
  Sender: FDA-Public Use
  Company Number: PHHY2018FI055709

PATIENT
  Age: 92 Year
  Sex: Male

DRUGS (6)
  1. LIXIANA [Suspect]
     Active Substance: EDOXABAN TOSYLATE
     Indication: ATRIAL FIBRILLATION
     Dosage: 30 MG, UNK
     Route: 065
     Dates: start: 20180211
  2. LOSARTAN POTASSIUM+HYDROCHLOROTHIAZIDE [Suspect]
     Active Substance: HYDROCHLOROTHIAZIDE\LOSARTAN POTASSIUM
     Indication: HYPERTENSION
     Dosage: UNK (DECREASED)
     Route: 048
  3. CLOPIDOGREL [Concomitant]
     Active Substance: CLOPIDOGREL BISULFATE
     Indication: PRODUCT USED FOR UNKNOWN INDICATION
     Dosage: UNK
     Route: 065
  4. BISOPROLOL [Concomitant]
     Active Substance: BISOPROLOL
     Indication: HYPERTENSION
     Dosage: 5 MG X1
     Route: 065
  5. ACETYLSALICYLIC ACID [Concomitant]
     Active Substance: ASPIRIN
     Indication: PRODUCT USED FOR UNKNOWN INDICATION
     Dosage: UNK
     Route: 065
  6. ASPIRIN. [Concomitant]
     Active Substance: ASPIRIN
     Indication: PRODUCT USED FOR UNKNOWN INDICATION
     Dosage: UNK
     Route: 065

REACTIONS (16)
  - General physical health deterioration [Unknown]
  - Fall [Unknown]
  - Nausea [Unknown]
  - Cerebrospinal fluid leakage [Unknown]
  - Subdural haematoma [Unknown]
  - Decreased appetite [Unknown]
  - Blood pressure decreased [Unknown]
  - Hypoacusis [Unknown]
  - Death [Fatal]
  - Transient ischaemic attack [Unknown]
  - Atrial fibrillation [Unknown]
  - Visual impairment [Unknown]
  - Confusional state [Unknown]
  - Depressed level of consciousness [Unknown]
  - Subdural effusion [Unknown]
  - Fatigue [Unknown]

NARRATIVE: CASE EVENT DATE: 2012
